FAERS Safety Report 15693076 (Version 2)
Quarter: 2019Q1

REPORT INFORMATION
  Report Type: Spontaneous
  Country: DE (occurrence: DE)
  Receive Date: 20181206
  Receipt Date: 20190118
  Transmission Date: 20190417
  Serious: Yes (Life-Threatening)
  Sender: FDA-Public Use
  Company Number: DE-ALK-ABELLO A/S-2018AA004229

PATIENT

DRUGS (1)
  1. ACARIZAX 12 SQ-HDM [Suspect]
     Active Substance: DERMATOPHAGOIDES FARINAE\DERMATOPHAGOIDES PTERONYSSINUS
     Indication: MITE ALLERGY
     Dosage: 12 SQ-HDM
     Route: 060
     Dates: start: 20181123

REACTIONS (9)
  - Panic reaction [Recovered/Resolved]
  - Throat tightness [Recovered/Resolved]
  - Feeling cold [Recovered/Resolved]
  - Throat irritation [Recovered/Resolved]
  - Rash [Recovered/Resolved]
  - Hypertension [Recovered/Resolved]
  - Respiratory distress [Recovered/Resolved]
  - Hyperventilation [Recovered/Resolved]
  - Pharyngeal erythema [Recovered/Resolved]

NARRATIVE: CASE EVENT DATE: 20181123
